FAERS Safety Report 17914969 (Version 1)
Quarter: 2020Q2

REPORT INFORMATION
  Report Type: Spontaneous
  Country: US (occurrence: US)
  Receive Date: 20200618
  Receipt Date: 20200618
  Transmission Date: 20200714
  Serious: Yes (Death, Life-Threatening, Other)
  Sender: FDA-Public Use
  Company Number: US-GILEAD-2020-0473383

PATIENT
  Age: 51 Year
  Sex: Female
  Weight: 57.1 kg

DRUGS (19)
  1. REMDESIVIR. [Suspect]
     Active Substance: REMDESIVIR
     Indication: COVID-19
     Dosage: 200 MG, QD
     Route: 042
     Dates: start: 20200519, end: 20200519
  2. ASCORBIC ACID. [Concomitant]
     Active Substance: ASCORBIC ACID
  3. GUAIFENESIN. [Concomitant]
     Active Substance: GUAIFENESIN
  4. ATORVASTATIN [Concomitant]
     Active Substance: ATORVASTATIN
  5. DEPAKOTE [Concomitant]
     Active Substance: DIVALPROEX SODIUM
  6. METOPROLOL. [Concomitant]
     Active Substance: METOPROLOL
  7. REMDESIVIR. [Suspect]
     Active Substance: REMDESIVIR
     Dosage: 100 MG, QD
     Route: 042
     Dates: start: 20200520, end: 20200520
  8. AZTREONAM. [Concomitant]
     Active Substance: AZTREONAM
  9. OXYGEN. [Concomitant]
     Active Substance: OXYGEN
  10. BUSPIRONE [Concomitant]
     Active Substance: BUSPIRONE HYDROCHLORIDE
  11. LOVENOX HP [Concomitant]
     Active Substance: ENOXAPARIN SODIUM
  12. RISPERIDONE. [Concomitant]
     Active Substance: RISPERIDONE
  13. BISACODYL. [Concomitant]
     Active Substance: BISACODYL
  14. CELEBREX [Concomitant]
     Active Substance: CELECOXIB
  15. CLONAZEPAM. [Concomitant]
     Active Substance: CLONAZEPAM
  16. DIGOXIN. [Concomitant]
     Active Substance: DIGOXIN
  17. CARBIDOPA-LEVODOPA-B [Concomitant]
     Active Substance: CARBIDOPA\LEVODOPA
  18. FENTANYL 3 DAY HMT [Concomitant]
  19. PROPOFOL. [Concomitant]
     Active Substance: PROPOFOL

REACTIONS (5)
  - Pneumothorax [Not Recovered/Not Resolved]
  - Death [Fatal]
  - General physical health deterioration [Not Recovered/Not Resolved]
  - Cardiac arrest [Not Recovered/Not Resolved]
  - Respiratory failure [Not Recovered/Not Resolved]

NARRATIVE: CASE EVENT DATE: 20200520
